FAERS Safety Report 24875882 (Version 4)
Quarter: 2025Q2

REPORT INFORMATION
  Report Type: Report from Study
  Country: US (occurrence: US)
  Receive Date: 20250122
  Receipt Date: 20250509
  Transmission Date: 20250716
  Serious: Yes (Hospitalization, Other)
  Sender: ABBVIE
  Company Number: US-ABBVIE-6045708

PATIENT
  Age: 76 Year
  Sex: Female
  Weight: 108.86 kg

DRUGS (8)
  1. HUMIRA [Suspect]
     Active Substance: ADALIMUMAB
     Indication: Rheumatoid arthritis
     Route: 058
     Dates: start: 202412
  2. HUMIRA [Suspect]
     Active Substance: ADALIMUMAB
     Dosage: FORM STRENGTH: 40 MILLIGRAM
     Route: 058
     Dates: start: 20230317, end: 202411
  3. HUMIRA [Suspect]
     Active Substance: ADALIMUMAB
     Route: 058
  4. GABAPENTIN [Concomitant]
     Active Substance: GABAPENTIN
     Indication: Arthritis
  5. METHOTREXATE [Suspect]
     Active Substance: METHOTREXATE
     Indication: Product used for unknown indication
     Route: 065
     Dates: end: 2025
  6. XIIDRA [Concomitant]
     Active Substance: LIFITEGRAST
     Indication: Dry eye
  7. DEXAMETHASONE [Concomitant]
     Active Substance: DEXAMETHASONE
     Indication: Product used for unknown indication
  8. MELOXICAM [Concomitant]
     Active Substance: MELOXICAM
     Indication: Product used for unknown indication
     Dosage: FOR 20 DAYS

REACTIONS (14)
  - Osteoarthritis [Recovered/Resolved]
  - Osteoarthritis [Recovered/Resolved]
  - Insomnia [Recovered/Resolved]
  - Pain [Unknown]
  - Dry eye [Unknown]
  - Muscle tightness [Unknown]
  - Initial insomnia [Unknown]
  - Limb injury [Unknown]
  - Hepatic enzyme abnormal [Unknown]
  - Ocular rosacea [Unknown]
  - Rosacea [Unknown]
  - Fall [Unknown]
  - Cataract [Unknown]
  - Ankle fracture [Recovering/Resolving]

NARRATIVE: CASE EVENT DATE: 20230801
